FAERS Safety Report 8010100-5 (Version None)
Quarter: 2011Q4

REPORT INFORMATION
  Report Type: 
  Country: None (occurrence: None)
  Receive Date: 20111228
  Receipt Date: 20111222
  Transmission Date: 20120403
  Serious: Yes (Death)
  Sender: FDA-Public Use
  Company Number: US-BRISTOL-MYERS SQUIBB COMPANY-16313553

PATIENT
  Age: 54 Year
  Sex: Male

DRUGS (5)
  1. IBUPROFEN [Suspect]
  2. OXYCODONE HCL [Suspect]
  3. OXYCODONE HCL AND ACETAMINOPHEN [Suspect]
  4. METHADONE HCL [Suspect]
  5. NADOLOL [Suspect]

REACTIONS (5)
  - CARDIAC ARREST [None]
  - RESPIRATORY ARREST [None]
  - INTENTIONAL DRUG MISUSE [None]
  - COMPLETED SUICIDE [None]
  - TOXICITY TO VARIOUS AGENTS [None]
